FAERS Safety Report 24307433 (Version 1)
Quarter: 2024Q3

REPORT INFORMATION
  Report Type: Spontaneous
  Country: US (occurrence: None)
  Receive Date: 20240911
  Receipt Date: 20240911
  Transmission Date: 20241017
  Serious: Yes (Death, Hospitalization)
  Sender: Public
  Company Number: None

PATIENT
  Sex: Female
  Weight: 51.8 kg

DRUGS (5)
  1. DEXAMETHASONE [Suspect]
     Active Substance: DEXAMETHASONE
  2. METHOTREXATE [Concomitant]
     Active Substance: METHOTREXATE
  3. MITOXANTRONE HYDROCHLORIDE [Concomitant]
     Active Substance: MITOXANTRONE HYDROCHLORIDE
  4. VINCRISTINE SULFATE [Concomitant]
  5. VORICONAZOLE [Concomitant]

REACTIONS (12)
  - Sepsis [None]
  - Respiratory failure [None]
  - Procedural complication [None]
  - Cholelithiasis [None]
  - Constipation [None]
  - Orthostatic hypotension [None]
  - Tachycardia [None]
  - Pseudomonas infection [None]
  - Escherichia infection [None]
  - Lung infiltration [None]
  - Circulatory collapse [None]
  - Haemorrhoids [None]

NARRATIVE: CASE EVENT DATE: 20180807
